FAERS Safety Report 25250975 (Version 1)
Quarter: 2025Q2

REPORT INFORMATION
  Report Type: Spontaneous
  Country: US (occurrence: US)
  Receive Date: 20250429
  Receipt Date: 20250429
  Transmission Date: 20250716
  Serious: No
  Sender: MERCK SHARP & DOHME LLC
  Company Number: US-009507513-2280452

PATIENT
  Age: 36 Year
  Sex: Female

DRUGS (5)
  1. TEMOZOLOMIDE [Suspect]
     Active Substance: TEMOZOLOMIDE
     Indication: Isocitrate dehydrogenase gene mutation
     Route: 048
  2. PEMBROLIZUMAB [Concomitant]
     Active Substance: PEMBROLIZUMAB
     Indication: Isocitrate dehydrogenase gene mutation
  3. IVOSIDENIB [Concomitant]
     Active Substance: IVOSIDENIB
     Indication: Isocitrate dehydrogenase gene mutation
  4. LOMUSTINE [Concomitant]
     Active Substance: LOMUSTINE
     Indication: Isocitrate dehydrogenase gene mutation
  5. Lysate vaccine [Concomitant]
     Indication: Isocitrate dehydrogenase gene mutation

REACTIONS (1)
  - Hypermutation [Unknown]
